FAERS Safety Report 16341890 (Version 1)
Quarter: 2019Q2

REPORT INFORMATION
  Report Type: Spontaneous
  Country: FR (occurrence: FR)
  Receive Date: 20190522
  Receipt Date: 20190522
  Transmission Date: 20190711
  Serious: Yes (Other)
  Sender: FDA-Public Use
  Company Number: FR-TEVA-2019-FR-1051408

PATIENT
  Age: 46 Year
  Sex: Female

DRUGS (1)
  1. EFAVIRENZ/EMTRICITABINE/TENOFOVIR DISOPROXIL [Suspect]
     Active Substance: EFAVIRENZ\EMTRICITABINE\TENOFOVIR DISOPROXIL FUMARATE
     Dosage: 600 MG/200 MG/245 MG
     Route: 065

REACTIONS (4)
  - Face oedema [Unknown]
  - Blister [Unknown]
  - Swelling face [Unknown]
  - Purulence [Unknown]
